FAERS Safety Report 7235045-X (Version None)
Quarter: 2011Q1

REPORT INFORMATION
  Report Type: 
  Country: None (occurrence: None)
  Receive Date: 20110120
  Receipt Date: 20110111
  Transmission Date: 20110831
  Serious: Yes (Hospitalization)
  Sender: FDA-Public Use
  Company Number: US-JNJFOC-20110104704

PATIENT

DRUGS (2)
  1. FENTANYL-100 [Suspect]
     Indication: PRODUCT USED FOR UNKNOWN INDICATION
     Route: 062
  2. PERCOCET [Suspect]
     Indication: ILL-DEFINED DISORDER
     Dosage: OXYCODONE 5 MG/ACETAMINOPHEN 325 MG, 3 OR 4 TIMES A DAY
     Route: 065

REACTIONS (2)
  - HOSPITALISATION [None]
  - DRUG ADMINISTRATION ERROR [None]
